FAERS Safety Report 5550003-9 (Version None)
Quarter: 2007Q4

REPORT INFORMATION
  Report Type: 
  Country: None (occurrence: None)
  Receive Date: 20071212
  Receipt Date: 20071205
  Transmission Date: 20080405
  Serious: Yes (Life-Threatening)
  Sender: FDA-Public Use
  Company Number: TR-AVENTIS-200717843GDDC

PATIENT
  Age: 51 Year
  Sex: Female
  Weight: 84 kg

DRUGS (7)
  1. LANTUS [Suspect]
     Route: 058
     Dates: start: 20070501
  2. OPTIPEN (INSULIN PUMP) [Suspect]
     Route: 058
  3. DIAMICRON [Concomitant]
     Dosage: DOSE QUANTITY: 2
     Route: 048
  4. KOLSIN [Concomitant]
     Dosage: DOSE QUANTITY: 3
     Route: 048
  5. TARDEN [Concomitant]
     Dosage: DOSE QUANTITY: 1
     Route: 048
  6. NORVASC                            /00972401/ [Concomitant]
     Dosage: DOSE QUANTITY: 1
     Route: 047
  7. LOSAPRES [Concomitant]
     Dosage: DOSE QUANTITY: 1
     Route: 048

REACTIONS (5)
  - BLOOD GLUCOSE INCREASED [None]
  - FATIGUE [None]
  - SYNCOPE [None]
  - VISION BLURRED [None]
  - WEIGHT DECREASED [None]
